FAERS Safety Report 10677530 (Version 1)
Quarter: 2014Q4

REPORT INFORMATION
  Report Type: Spontaneous
  Country: IL (occurrence: IL)
  Receive Date: 20141228
  Receipt Date: 20141228
  Transmission Date: 20150529
  Serious: Yes (Other)
  Sender: FDA-Public Use
  Company Number: IL-TEVA-530737ISR

PATIENT
  Sex: Female

DRUGS (8)
  1. AERRANE [Suspect]
     Active Substance: ISOFLURANE
     Indication: MAINTENANCE OF ANAESTHESIA
     Dosage: 0.6-1.0 MAC IN 50% OXYGEN
  2. ROCURONIUM [Suspect]
     Active Substance: ROCURONIUM BROMIDE
     Indication: ENDOTRACHEAL INTUBATION
     Dosage: 0.5-1.0 MG/KG
  3. METRONIDAZOLE. [Suspect]
     Active Substance: METRONIDAZOLE
     Indication: ANTIBIOTIC PROPHYLAXIS
     Dosage: 500 MILLIGRAM DAILY;
     Route: 042
  4. FENTANYL. [Suspect]
     Active Substance: FENTANYL
     Indication: INDUCTION OF ANAESTHESIA
     Dosage: 1-2 MCG/KG BODY WEIGHT
     Route: 042
  5. ISOTONIC GENTAMICIN SULFATE INJ. 80 MG/100 ML [Suspect]
     Active Substance: GENTAMICIN SULFATE
     Dosage: 240 MILLIGRAM DAILY;
     Route: 042
  6. TRAMADOL [Suspect]
     Active Substance: TRAMADOL
     Indication: PAIN PROPHYLAXIS
     Dosage: 100 MILLIGRAM DAILY;
  7. ONDANSETRON [Suspect]
     Active Substance: ONDANSETRON
     Indication: PAIN PROPHYLAXIS
     Dosage: 4 MILLIGRAM DAILY;
  8. PROPOFOL. [Suspect]
     Active Substance: PROPOFOL
     Indication: INDUCTION OF ANAESTHESIA
     Dosage: 1-3 MG/KG BODY WEIGHT

REACTIONS (2)
  - Peritoneal haemorrhage [Recovered/Resolved]
  - Post procedural complication [Recovered/Resolved]
